FAERS Safety Report 9328851 (Version 1)
Quarter: 2013Q2

REPORT INFORMATION
  Report Type: Spontaneous
  Country: US (occurrence: US)
  Receive Date: 20130604
  Receipt Date: 20130604
  Transmission Date: 20140414
  Serious: Yes (Hospitalization)
  Sender: FDA-Public Use
  Company Number: US-SANOFI-AVENTIS-2013SA018608

PATIENT
  Age: 86 Year
  Sex: Female
  Weight: 45.35 kg

DRUGS (9)
  1. LANTUS SOLOSTAR [Suspect]
     Indication: TYPE 2 DIABETES MELLITUS
     Dosage: THERAPY START DATE - MORE THAN THREE YEARS DOSE:20 UNIT(S)
     Route: 051
  2. SOLOSTAR [Suspect]
     Indication: TYPE 2 DIABETES MELLITUS
     Dosage: THERAY START DATE - MORE THAN THREE YEARS
  3. HUMALOG [Concomitant]
  4. ISORBIDE [Concomitant]
  5. SYNTHROID [Concomitant]
  6. METOPROLOL [Concomitant]
  7. AMLODIPINE BESILATE [Concomitant]
  8. LIPITOR [Concomitant]
  9. VESICARE [Concomitant]

REACTIONS (3)
  - Hyperglycaemia [Unknown]
  - Blood glucose abnormal [Unknown]
  - Incorrect storage of drug [Unknown]
